FAERS Safety Report 6739789-5 (Version None)
Quarter: 2010Q2

REPORT INFORMATION
  Report Type: 
  Country: None (occurrence: None)
  Receive Date: 20100525
  Receipt Date: 20100511
  Transmission Date: 20101027
  Serious: Yes (Other)
  Sender: FDA-Public Use
  Company Number: PHHY2010US30544

PATIENT
  Sex: Male
  Weight: 119.7 kg

DRUGS (4)
  1. DIOVAN [Suspect]
     Dosage: UNK
  2. AMARYL [Concomitant]
     Indication: DIABETES MELLITUS
     Dosage: UNK
  3. JANUMET [Concomitant]
     Indication: DIABETES MELLITUS
     Dosage: UNK
  4. ALAVERT [Concomitant]

REACTIONS (1)
  - WEIGHT INCREASED [None]
